FAERS Safety Report 7305858-4 (Version None)
Quarter: 2011Q1

REPORT INFORMATION
  Report Type: 
  Country: None (occurrence: None)
  Receive Date: 20110222
  Receipt Date: 20110209
  Transmission Date: 20110831
  Serious: Yes (Hospitalization)
  Sender: FDA-Public Use
  Company Number: DE-ROCHE-760871

PATIENT
  Sex: Male
  Weight: 100 kg

DRUGS (5)
  1. OXYCODONE [Concomitant]
     Dosage: LONG-TERM MEDICATION
     Route: 048
  2. TRIMIPRAMINE MALEATE [Concomitant]
     Dosage: LONG-TERM MEDICATION
     Route: 048
  3. GABAPENTIN [Concomitant]
     Dosage: LONG-TERM MEDICATION
     Route: 048
  4. TAMIFLU [Suspect]
     Indication: H1N1 INFLUENZA
     Route: 048
     Dates: start: 20110128, end: 20110130
  5. DIAZEPAM [Concomitant]
     Indication: PANIC ATTACK
     Dosage: IF REQUIRED

REACTIONS (3)
  - AGITATION [None]
  - INSOMNIA [None]
  - PANIC ATTACK [None]
